FAERS Safety Report 25353513 (Version 1)
Quarter: 2025Q2

REPORT INFORMATION
  Report Type: Report from Study
  Country: US (occurrence: US)
  Receive Date: 20250523
  Receipt Date: 20250523
  Transmission Date: 20250716
  Serious: No
  Sender: MALLINCKRODT
  Company Number: US-MALLINCKRODT-MNK202503023

PATIENT
  Age: 68 Year
  Sex: Female
  Weight: 132 kg

DRUGS (8)
  1. CORTICOTROPIN [Suspect]
     Active Substance: CORTICOTROPIN
     Indication: Antiphospholipid antibodies
     Dosage: 40 UNITS
     Route: 058
     Dates: start: 20250131
  2. OMEPRAZOLE [Concomitant]
     Active Substance: OMEPRAZOLE
  3. PREDNISONE [Concomitant]
     Active Substance: PREDNISONE
  4. HYDROXYCHLOROQUINE DIPHOSPHATE [Concomitant]
     Active Substance: HYDROXYCHLOROQUINE DIPHOSPHATE
  5. XELJANZ [Concomitant]
     Active Substance: TOFACITINIB CITRATE
  6. RITUXIMAB [Concomitant]
     Active Substance: RITUXIMAB
  7. VITAMINS NOS [Concomitant]
     Active Substance: VITAMINS
  8. IVIGLOB EX [Concomitant]
     Active Substance: HUMAN IMMUNOGLOBULIN G

REACTIONS (1)
  - Injection site pain [Unknown]

NARRATIVE: CASE EVENT DATE: 20250101
